FAERS Safety Report 22033962 (Version 4)
Quarter: 2024Q2

REPORT INFORMATION
  Report Type: Spontaneous
  Country: US (occurrence: US)
  Receive Date: 20230224
  Receipt Date: 20240627
  Transmission Date: 20240716
  Serious: No
  Sender: FDA-Public Use
  Company Number: US-GSKCCFUS-Case-01630532_AE-92024

PATIENT
  Age: 80 Year
  Sex: Female

DRUGS (4)
  1. TRELEGY ELLIPTA [Suspect]
     Active Substance: FLUTICASONE FUROATE\UMECLIDINIUM BROMIDE\VILANTEROL TRIFENATATE
     Indication: Product used for unknown indication
     Dosage: 1 PUFF(S), QD
     Route: 055
     Dates: start: 20230203
  2. BREO ELLIPTA [Suspect]
     Active Substance: FLUTICASONE FUROATE\VILANTEROL TRIFENATATE
     Indication: Asthma
     Dosage: UNK UNK, QD,100/25 MCG
     Dates: start: 2023
  3. BREO ELLIPTA [Suspect]
     Active Substance: FLUTICASONE FUROATE\VILANTEROL TRIFENATATE
     Indication: Restrictive pulmonary disease
  4. PREDNISONE [Suspect]
     Active Substance: PREDNISONE
     Indication: Product used for unknown indication
     Dosage: 1 PUFF(S), QD (50 MG, TAPER)
     Route: 042
     Dates: start: 20230203

REACTIONS (6)
  - Dysphonia [Recovered/Resolved]
  - Lung disorder [Recovered/Resolved]
  - Heart rate increased [Recovered/Resolved]
  - Insomnia [Recovered/Resolved]
  - Product prescribing error [Unknown]
  - Product use in unapproved indication [Unknown]

NARRATIVE: CASE EVENT DATE: 20230205
